FAERS Safety Report 4579312-7 (Version None)
Quarter: 2005Q1

REPORT INFORMATION
  Report Type: 
  Country: None (occurrence: None)
  Receive Date: 20050209
  Receipt Date: 20050127
  Transmission Date: 20050727
  Serious: Yes (Other)
  Sender: FDA-Public Use
  Company Number: 2005020829

PATIENT
  Age: 53 Year
  Sex: Female

DRUGS (2)
  1. ZYRTEC [Suspect]
     Indication: ILL-DEFINED DISORDER
  2. ZANTAC 75 [Suspect]
     Indication: ILL-DEFINED DISORDER

REACTIONS (3)
  - JOINT ARTHROPLASTY [None]
  - KNEE OPERATION [None]
  - TUBULISATION NERVE REPAIR [None]
